FAERS Safety Report 22384885 (Version 2)
Quarter: 2023Q2

REPORT INFORMATION
  Report Type: Spontaneous
  Country: US (occurrence: US)
  Receive Date: 20230530
  Receipt Date: 20230627
  Transmission Date: 20230722
  Serious: Yes (Other)
  Sender: FDA-Public Use
  Company Number: US-PFIZER INC-202300201988

PATIENT
  Age: 85 Year
  Sex: Female

DRUGS (13)
  1. IBRANCE [Suspect]
     Active Substance: PALBOCICLIB
     Dosage: 100 MG, CYCLIC (100 MG DAILY 1 TABLET 21/28 DAY CYCLE)
     Dates: start: 20230422
  2. IBRANCE [Suspect]
     Active Substance: PALBOCICLIB
     Dosage: 100 MG, DAILY X 21 DAYS
     Dates: start: 20230427
  3. IBRANCE [Suspect]
     Active Substance: PALBOCICLIB
     Dosage: 100 MG, CYCLIC (100MG TAB 21D ON WITH 7D OFF)
     Dates: start: 20230429, end: 20230520
  4. BRIMONIDINE TARTRATE/TIMOLOL [Concomitant]
     Dosage: UNK (BRIMONIDINE TARTRATE-TIMOLOL OPHTHA)
     Route: 047
  5. DOCUSATE SODIUM [Concomitant]
     Active Substance: DOCUSATE SODIUM
     Dosage: UNK (DOCUSATE SODIUM ORAL CAPSULE 100MG)
     Route: 048
  6. FASLODEX [Concomitant]
     Active Substance: FULVESTRANT
     Dosage: UNK (FASLODEX INTRAMUSCULAR SOLUTION PRE)
     Route: 030
  7. ACETAMINOPHEN\HYDROCODONE [Concomitant]
     Active Substance: ACETAMINOPHEN\HYDROCODONE
     Dosage: UNK (HYDROCODONE-ACETAMINOPHEN ORAL TABL)
     Route: 048
  8. LOVASTATIN [Concomitant]
     Active Substance: LOVASTATIN
     Dosage: UNK (LOVASTATIN ORAL TABLET 20MG)
     Route: 048
  9. LUMIGAN [Concomitant]
     Active Substance: BIMATOPROST
     Dosage: UNK (LUMIGAN OPHTHALMIC SOLUTION 0.01 %)
     Route: 047
  10. MELATONIN GUMMIES [Concomitant]
     Dosage: UNK (MELATONIN GUMMIES ORAL TABLET CHEWA)
     Route: 048
  11. METOPROLOL SUCCINATE [Concomitant]
     Active Substance: METOPROLOL SUCCINATE
     Dosage: UNK (METOPROLOL SUCCINATE ER ORAL TABLET)
  12. SERTRALINE HYDROCHLORIDE [Concomitant]
     Active Substance: SERTRALINE HYDROCHLORIDE
     Dosage: UNK (SERTRALINE HCL ORAL TABLET 50MG)
     Route: 048
  13. HYDROCHLOROTHIAZIDE\VALSARTAN [Concomitant]
     Active Substance: HYDROCHLOROTHIAZIDE\VALSARTAN
     Dosage: UNK
     Route: 048

REACTIONS (10)
  - Pain in extremity [Recovering/Resolving]
  - Back pain [Recovering/Resolving]
  - Decreased appetite [Recovering/Resolving]
  - Asthenia [Recovering/Resolving]
  - Hot flush [Recovering/Resolving]
  - Weight decreased [Not Recovered/Not Resolved]
  - Joint swelling [Not Recovered/Not Resolved]
  - Anaemia [Not Recovered/Not Resolved]
  - Constipation [Unknown]
  - Depressed mood [Unknown]

NARRATIVE: CASE EVENT DATE: 20230519
